FAERS Safety Report 10674564 (Version 1)
Quarter: 2014Q4

REPORT INFORMATION
  Report Type: Spontaneous
  Country: JP (occurrence: JP)
  Receive Date: 20141224
  Receipt Date: 20141224
  Transmission Date: 20150529
  Serious: Yes (Death, Hospitalization, Other)
  Sender: FDA-Public Use
  Company Number: JP-PFIZER INC-2014352716

PATIENT
  Age: 72 Year
  Sex: Male

DRUGS (9)
  1. SULFAMETHOXAZOLE AND TRIMETHOPRIM [Suspect]
     Active Substance: SULFAMETHOXAZOLE\TRIMETHOPRIM
     Dosage: 0.5 DF, DAILY
     Route: 048
  2. PREDONINE [Concomitant]
     Active Substance: PREDNISOLONE\PREDNISOLONE ACETATE\PREDNISOLONE SODIUM SUCCINATE
     Dosage: 30 MG, DAILY
     Route: 048
  3. TAKEPRON [Suspect]
     Active Substance: LANSOPRAZOLE
     Dosage: 15 MG, DAILY
     Route: 048
  4. BLOPRESS [Concomitant]
     Active Substance: CANDESARTAN CILEXETIL
     Dosage: UNK
     Route: 048
  5. OLMETEC [Suspect]
     Active Substance: OLMESARTAN MEDOXOMIL
     Dosage: UNK
     Route: 048
  6. VITAMINS NOS [Suspect]
     Active Substance: VITAMINS
     Dosage: 30 MG, DAILY
     Route: 048
  7. AZEPTIN [Concomitant]
     Dosage: 1 MG, DAILY
     Route: 048
  8. AMLODIN [Suspect]
     Active Substance: AMLODIPINE BESYLATE
     Route: 048
  9. ZYLORIC [Suspect]
     Active Substance: ALLOPURINOL
     Dosage: 100 MG, DAILY
     Route: 048

REACTIONS (7)
  - Pleural effusion [Fatal]
  - Abdominal pain upper [Unknown]
  - Granulocytopenia [Not Recovered/Not Resolved]
  - Pleurisy [Fatal]
  - Bronchopulmonary aspergillosis [Fatal]
  - White blood cell count decreased [Unknown]
  - Hyperkalaemia [Unknown]
